FAERS Safety Report 23125820 (Version 1)
Quarter: 2023Q4

REPORT INFORMATION
  Report Type: Spontaneous
  Country: PL (occurrence: PL)
  Receive Date: 20231030
  Receipt Date: 20231030
  Transmission Date: 20240110
  Serious: Yes (Death)
  Sender: FDA-Public Use
  Company Number: PL-USP-ICSR-2023-02-04-102_40

PATIENT
  Age: 64 Year
  Sex: Female

DRUGS (6)
  1. OMEPRAZOLE [Interacting]
     Active Substance: OMEPRAZOLE
     Indication: Abdominal pain upper
     Dosage: 40 MILLIGRAM, QD
  2. CHONDROITIN SULFATE (BOVINE) [Concomitant]
     Active Substance: CHONDROITIN SULFATE (BOVINE)
  3. ACETAMINOPHEN [Interacting]
     Active Substance: ACETAMINOPHEN
     Indication: Arthralgia
     Dosage: 1000MG 2X/24H DURING THE DAY/1000 MG, BID (2 ?/24 H DURING THE DAY)/1000 MG, QOD
  4. WARFARIN SODIUM [Interacting]
     Active Substance: WARFARIN SODIUM
     Indication: Atrial fibrillation
     Dosage: VARIABLE DOSAGES, ADJUSTED FOR INR VALUES
  5. METOPROLOL [Suspect]
     Active Substance: METOPROLOL
     Indication: Atrial fibrillation
     Dosage: 1 X 50 MG/50 MG, QD
  6. ACETAMINOPHEN\DIPHENHYDRAMINE [Interacting]
     Active Substance: ACETAMINOPHEN\DIPHENHYDRAMINE
     Indication: Arthralgia
     Dosage: DURING THE NIGHT IN COMBINATION WITH PARACETAMOL./1 DOSAGE FORM, QD, AT NIGHT/UNK UNK,

REACTIONS (1)
  - Coagulation time prolonged [Fatal]
